FAERS Safety Report 15625355 (Version 2)
Quarter: 2018Q4

REPORT INFORMATION
  Report Type: Spontaneous
  Country: FR (occurrence: FR)
  Receive Date: 20181116
  Receipt Date: 20181225
  Transmission Date: 20190205
  Serious: Yes (Hospitalization)
  Sender: FDA-Public Use
  Company Number: FR-AUROBINDO-AUR-APL-2018-055168

PATIENT
  Age: 89 Year
  Sex: Female

DRUGS (4)
  1. RISPERIDONE. [Suspect]
     Active Substance: RISPERIDONE
     Indication: COGNITIVE DISORDER
     Dosage: 0.5 DOSAGE FORM, TWO TIMES A DAY
     Route: 048
     Dates: end: 20100302
  2. EQUANIL [Suspect]
     Active Substance: MEPROBAMATE
     Indication: DEPRESSION
     Dosage: 250 MILLIGRAM, 3 TIMES A DAY
     Route: 048
  3. EQUANIL [Suspect]
     Active Substance: MEPROBAMATE
     Dosage: 250 MG,TID
     Route: 048
     Dates: end: 20100302
  4. MIANSERIN [Suspect]
     Active Substance: MIANSERIN
     Indication: DEPRESSION
     Dosage: UNK
     Route: 048

REACTIONS (2)
  - Cognitive disorder [Unknown]
  - Fall [Unknown]

NARRATIVE: CASE EVENT DATE: 200907
